FAERS Safety Report 24593831 (Version 2)
Quarter: 2024Q4

REPORT INFORMATION
  Report Type: Spontaneous
  Country: ES (occurrence: ES)
  Receive Date: 20241108
  Receipt Date: 20241212
  Transmission Date: 20250115
  Serious: Yes (Other)
  Sender: PFIZER
  Company Number: ES-ROCHE-10000109578

PATIENT
  Age: 24 Year
  Sex: Male
  Weight: 62.4 kg

DRUGS (14)
  1. BEVACIZUMAB [Suspect]
     Active Substance: BEVACIZUMAB
     Indication: Hepatic cancer metastatic
     Dosage: 924 MG, EVERY 3 WEEKS
     Route: 042
     Dates: start: 20240418
  2. BEVACIZUMAB [Suspect]
     Active Substance: BEVACIZUMAB
     Dosage: 937.5 MG, EVERY 3 WEEKS
     Route: 042
     Dates: start: 20241007
  3. ATEZOLIZUMAB [Suspect]
     Active Substance: ATEZOLIZUMAB
     Indication: Hepatic cancer metastatic
     Dosage: 1200 MG, EVERY 3 WEEKS
     Route: 042
     Dates: start: 20240418
  4. ATEZOLIZUMAB [Suspect]
     Active Substance: ATEZOLIZUMAB
     Dosage: 1200 MG, EVERY 3 WEEKS
     Route: 042
     Dates: start: 20241007
  5. TIRAGOLUMAB [Suspect]
     Active Substance: TIRAGOLUMAB
     Indication: Hepatic cancer metastatic
     Dosage: UNK
     Route: 042
     Dates: start: 20240418
  6. TIRAGOLUMAB [Suspect]
     Active Substance: TIRAGOLUMAB
     Dosage: UNK
     Route: 042
     Dates: start: 20241007
  7. BETAMETHASONE [Concomitant]
     Active Substance: BETAMETHASONE
     Indication: Psoriasis
     Dosage: 0.5 OTHER
     Route: 061
     Dates: start: 20240808
  8. CLINDAMYCIN [Concomitant]
     Active Substance: CLINDAMYCIN
     Indication: Psoriasis
     Dosage: UNK UNK, AS NEEDED
     Route: 061
     Dates: start: 20240808
  9. FOLIC ACID [Concomitant]
     Active Substance: FOLIC ACID
     Indication: Thrombocytosis
     Dosage: 5 MG, 1X/DAY
     Route: 048
     Dates: start: 20240819
  10. IRON [Concomitant]
     Active Substance: IRON
     Indication: Iron deficiency
     Dosage: 80 MG, 1X/DAY
     Route: 048
     Dates: start: 20240821, end: 20240929
  11. MOMETASONE FUROATE [Concomitant]
     Active Substance: MOMETASONE FUROATE
     Indication: Psoriasis
     Dosage: 1 OTHER
     Route: 061
     Dates: start: 20240808
  12. OMEPRAZOLE [Concomitant]
     Active Substance: OMEPRAZOLE
     Dosage: 20 MG, 1X/DAY
     Route: 048
     Dates: start: 20241016, end: 20241113
  13. ACETAMINOPHEN [Concomitant]
     Active Substance: ACETAMINOPHEN
     Indication: Gingival bleeding
     Dosage: 1 G, 1X/DAY
     Route: 042
     Dates: start: 20241017, end: 20241017
  14. SALICYLIC ACID [Concomitant]
     Active Substance: SALICYLIC ACID
     Indication: Psoriasis
     Dosage: 20 OTHER
     Route: 061
     Dates: start: 20240808

REACTIONS (2)
  - Autoimmune myositis [Recovered/Resolved]
  - Off label use [Unknown]

NARRATIVE: CASE EVENT DATE: 20241015
